FAERS Safety Report 10563387 (Version 1)
Quarter: 2014Q4

REPORT INFORMATION
  Report Type: Spontaneous
  Country: US (occurrence: None)
  Receive Date: 20141103
  Receipt Date: 20141103
  Transmission Date: 20150529
  Serious: No
  Sender: FDA-Public Use
  Company Number: None

PATIENT
  Age: 33 Year
  Sex: Male
  Weight: 103.42 kg

DRUGS (1)
  1. LEVOFLOXACIN. [Suspect]
     Active Substance: LEVOFLOXACIN
     Indication: PNEUMONIA
     Dosage: 1  ONCE DAILY TAKEN BY MOUTH
     Route: 048
     Dates: start: 20141020, end: 20141023

REACTIONS (5)
  - Nausea [None]
  - Palpitations [None]
  - Asthenia [None]
  - Muscular weakness [None]
  - Limb discomfort [None]

NARRATIVE: CASE EVENT DATE: 20141020
